FAERS Safety Report 6673219-7 (Version None)
Quarter: 2010Q2

REPORT INFORMATION
  Report Type: 
  Country: None (occurrence: None)
  Receive Date: 20100408
  Receipt Date: 20100325
  Transmission Date: 20101027
  Serious: No
  Sender: FDA-Public Use
  Company Number: US-ROXANE LABORATORIES, INC.-2010-RO-00351RO

PATIENT
  Age: 19 Year
  Sex: Female

DRUGS (5)
  1. MEFLOQUINE HCL [Suspect]
     Indication: MALARIA PROPHYLAXIS
     Route: 048
     Dates: start: 20100306
  2. VYVANSE [Concomitant]
  3. FEXOFENADINE [Concomitant]
     Indication: MULTIPLE ALLERGIES
  4. NASACORT [Concomitant]
     Indication: MULTIPLE ALLERGIES
  5. MULTI-VITAMIN [Concomitant]

REACTIONS (14)
  - ABDOMINAL PAIN UPPER [None]
  - ANXIETY [None]
  - COGNITIVE DISORDER [None]
  - DECREASED APPETITE [None]
  - DEPRESSION [None]
  - DYSPNOEA [None]
  - FATIGUE [None]
  - HALLUCINATION [None]
  - MEMORY IMPAIRMENT [None]
  - NIGHTMARE [None]
  - PARANOIA [None]
  - PERSONALITY CHANGE [None]
  - SPEECH DISORDER [None]
  - TINNITUS [None]
